FAERS Safety Report 6908405-1 (Version None)
Quarter: 2010Q3

REPORT INFORMATION
  Report Type: 
  Country: None (occurrence: None)
  Receive Date: 20100803
  Receipt Date: 20100720
  Transmission Date: 20110219
  Serious: Yes (Death, Hospitalization)
  Sender: FDA-Public Use
  Company Number: 2010PL000081

PATIENT
  Age: 18 Year
  Sex: Male

DRUGS (2)
  1. MERCAPTOPURINE [Suspect]
     Indication: CROHN'S DISEASE
     Dosage: 25 MG;QOD
  2. MERCAPTOPURINE [Suspect]
     Indication: CROHN'S DISEASE
     Dosage: 50 MG; QOD

REACTIONS (8)
  - BLOOD LACTATE DEHYDROGENASE INCREASED [None]
  - FEBRILE NEUTROPENIA [None]
  - HEPATOSPLENIC T-CELL LYMPHOMA [None]
  - MONOCYTE PERCENTAGE INCREASED [None]
  - NIGHT SWEATS [None]
  - NO THERAPEUTIC RESPONSE [None]
  - PANCYTOPENIA [None]
  - SPLENOMEGALY [None]
